FAERS Safety Report 14830604 (Version 1)
Quarter: 2018Q2

REPORT INFORMATION
  Report Type: Spontaneous
  Country: US (occurrence: US)
  Receive Date: 20180430
  Receipt Date: 20180430
  Transmission Date: 20180711
  Serious: No
  Sender: FDA-Public Use
  Company Number: US-SA-2018SA077640

PATIENT
  Age: 56 Year
  Sex: Male

DRUGS (2)
  1. ALIROCUMAB PREFILLED  PEN [Suspect]
     Active Substance: ALIROCUMAB
     Dates: start: 20180309
  2. PRALUENT [Suspect]
     Active Substance: ALIROCUMAB
     Route: 058
     Dates: start: 20180309

REACTIONS (5)
  - Fatigue [Recovering/Resolving]
  - Malaise [Recovering/Resolving]
  - Headache [Recovering/Resolving]
  - Swelling face [Recovering/Resolving]
  - Back pain [Recovering/Resolving]

NARRATIVE: CASE EVENT DATE: 20180309
